FAERS Safety Report 16185901 (Version 1)
Quarter: 2019Q2

REPORT INFORMATION
  Report Type: Spontaneous
  Country: SE (occurrence: SE)
  Receive Date: 20190411
  Receipt Date: 20190411
  Transmission Date: 20190711
  Serious: Yes (Life-Threatening)
  Sender: FDA-Public Use
  Company Number: SE-EXELIXIS-CABO-19020139

PATIENT
  Age: 66 Year
  Sex: Male

DRUGS (7)
  1. CABOMETYX [Suspect]
     Active Substance: CABOZANTINIB S-MALATE
     Indication: METASTASES TO LUNG
     Dosage: 20 MG, QD
     Route: 048
     Dates: start: 20190208, end: 20190217
  2. ATORVASTATIN [Suspect]
     Active Substance: ATORVASTATIN
     Dosage: 40 MG, QD
     Route: 048
     Dates: start: 20190205, end: 20190217
  3. ZOLPIDEM [Concomitant]
     Active Substance: ZOLPIDEM\ZOLPIDEM TARTRATE
     Dosage: 5 MG, UNK
  4. METOPROLOL. [Concomitant]
     Active Substance: METOPROLOL
     Dosage: 100 MG, QD
  5. SYNACTHEN DEPOT [Concomitant]
     Active Substance: COSYNTROPIN HEXAACETATE
     Dosage: 1 MG, Q WEEKLY
  6. TROMBYL [Concomitant]
     Active Substance: ASPIRIN
     Dosage: 75 MG, QD
  7. LEVAXIN [Concomitant]
     Active Substance: LEVOTHYROXINE SODIUM
     Dosage: 25 ?G, QD

REACTIONS (2)
  - Drug interaction [Recovered/Resolved with Sequelae]
  - Acute hepatic failure [Recovered/Resolved with Sequelae]

NARRATIVE: CASE EVENT DATE: 20190217
